FAERS Safety Report 9454842 (Version 1)
Quarter: 2013Q3

REPORT INFORMATION
  Report Type: Spontaneous
  Country: US (occurrence: US)
  Receive Date: 20130813
  Receipt Date: 20130813
  Transmission Date: 20140515
  Serious: Yes (Hospitalization)
  Sender: FDA-Public Use
  Company Number: US-JNJFOC-20130718088

PATIENT
  Sex: Male
  Weight: 74.84 kg

DRUGS (3)
  1. TYLENOL UNSPECIFIED [Suspect]
     Route: 065
  2. TYLENOL UNSPECIFIED [Suspect]
     Indication: PRODUCT USED FOR UNKNOWN INDICATION
     Route: 065
     Dates: start: 2004
  3. CENTRUM SILVER [Suspect]
     Indication: ROUTINE HEALTH MAINTENANCE
     Route: 065

REACTIONS (4)
  - Bladder neoplasm [Unknown]
  - Arterial occlusive disease [Unknown]
  - Cardiac failure congestive [Unknown]
  - Intestinal haemorrhage [Unknown]
